FAERS Safety Report 7962259-3 (Version None)
Quarter: 2011Q4

REPORT INFORMATION
  Report Type: 
  Country: None (occurrence: None)
  Receive Date: 20111207
  Receipt Date: 20111202
  Transmission Date: 20120403
  Serious: Yes (Other)
  Sender: FDA-Public Use
  Company Number: PHEH2011US010752

PATIENT
  Age: 62 Year
  Sex: Female

DRUGS (10)
  1. ANTIBIOTICS [Concomitant]
     Indication: DIVERTICULITIS
  2. ALINIA [Concomitant]
  3. PREVACID [Concomitant]
  4. VITAMIN D [Concomitant]
  5. ABAPRO [Concomitant]
     Dosage: 300 MG, UNK
  6. AMITRIPTYLINE HCL [Concomitant]
     Indication: MIGRAINE
     Dosage: 100 MG, UNK
  7. RECLAST [Suspect]
     Indication: OSTEOPOROSIS
     Route: 042
  8. METOPROLOL TARTRATE [Concomitant]
     Dosage: 100 MG, UNK
  9. EXCEDRIN (MIGRAINE) [Concomitant]
     Indication: BACK PAIN
  10. LEVOTHYROXINE SODIUM [Concomitant]
     Indication: THYROID DISORDER
     Dosage: 0.088 MG, UNK

REACTIONS (5)
  - CYST [None]
  - NAUSEA [None]
  - VOMITING [None]
  - DIARRHOEA [None]
  - VITAMIN D DECREASED [None]
